FAERS Safety Report 16596314 (Version 4)
Quarter: 2019Q3

REPORT INFORMATION
  Report Type: Report from Study
  Country: US (occurrence: US)
  Receive Date: 20190719
  Receipt Date: 20190911
  Transmission Date: 20191004
  Serious: Yes (Hospitalization, Other)
  Sender: FDA-Public Use
  Company Number: US-ROCHE-2352798

PATIENT
  Sex: Female

DRUGS (1)
  1. OCREVUS [Suspect]
     Active Substance: OCRELIZUMAB
     Indication: MULTIPLE SCLEROSIS
     Dosage: 11/AUG/2017, 29/JAN/2018, 30/JUL/2018
     Route: 065
     Dates: start: 20170728

REACTIONS (5)
  - Fungal infection [Not Recovered/Not Resolved]
  - Cystitis [Unknown]
  - Urinary tract infection [Unknown]
  - Bladder dilatation [Unknown]
  - Colitis [Not Recovered/Not Resolved]
